FAERS Safety Report 18949443 (Version 1)
Quarter: 2021Q1

REPORT INFORMATION
  Report Type: Spontaneous
  Country: US (occurrence: US)
  Receive Date: 20210227
  Receipt Date: 20210227
  Transmission Date: 20210420
  Serious: No
  Sender: FDA-Public Use
  Company Number: US-ROCHE-2659963

PATIENT
  Age: 63 Year
  Sex: Male
  Weight: 108.96 kg

DRUGS (11)
  1. XOLAIR [Suspect]
     Active Substance: OMALIZUMAB
     Indication: CHRONIC SPONTANEOUS URTICARIA
     Dosage: ONGOING? NO
     Route: 058
     Dates: start: 20200715
  2. PREDNISONE. [Concomitant]
     Active Substance: PREDNISONE
     Dosage: 1 1/2 TO 2 TABS DAILY AS NEEDED ;ONGOING: YES
     Route: 048
     Dates: start: 20200219
  3. BUSPIRONE [Concomitant]
     Active Substance: BUSPIRONE HYDROCHLORIDE
  4. PLAQUENIL [Concomitant]
     Active Substance: HYDROXYCHLOROQUINE SULFATE
     Route: 048
     Dates: start: 20200515
  5. LOSARTAN. [Concomitant]
     Active Substance: LOSARTAN
  6. FEXOFENADINE [Concomitant]
     Active Substance: FEXOFENADINE HYDROCHLORIDE
  7. XOLAIR [Suspect]
     Active Substance: OMALIZUMAB
  8. CITALOPRAM HYDROBROMIDE. [Concomitant]
     Active Substance: CITALOPRAM HYDROBROMIDE
  9. XOLAIR [Suspect]
     Active Substance: OMALIZUMAB
  10. HYDROCHLOROTHIAZIDE. [Concomitant]
     Active Substance: HYDROCHLOROTHIAZIDE
  11. CIMETIDINE [Concomitant]
     Active Substance: CIMETIDINE

REACTIONS (2)
  - Blood pressure increased [Unknown]
  - Intercepted medication error [Unknown]

NARRATIVE: CASE EVENT DATE: 20200812
